FAERS Safety Report 10891134 (Version 1)
Quarter: 2015Q1

REPORT INFORMATION
  Report Type: Spontaneous
  Country: US (occurrence: US)
  Receive Date: 20150305
  Receipt Date: 20150305
  Transmission Date: 20150721
  Serious: No
  Sender: FDA-Public Use
  Company Number: US-PFIZER INC-2015047582

PATIENT
  Age: 73 Year
  Sex: Female

DRUGS (20)
  1. PROAIR HFA (ALBUTEROL SULFATE) [Concomitant]
     Indication: ASTHMA
     Dosage: 90 ?G, 4X/DAY
  2. ALBUTEROL SULFATE/IPRATROPIUM BROMIDE [Concomitant]
     Active Substance: ALBUTEROL SULFATE\IPRATROPIUM BROMIDE
     Indication: ASTHMA
     Dosage: UNK, 4X/DAY(2.5MG/ 5MG)
  3. METFORMIN [Concomitant]
     Active Substance: METFORMIN HYDROCHLORIDE
     Indication: DIABETES MELLITUS
     Dosage: 1000 MG, 1X/DAY
  4. BAYER ASPIRIN [Concomitant]
     Active Substance: ASPIRIN
     Dosage: 1000 IU, 1X/DAY
  5. WOMEN^S ONE A DAY  MENOPAUSE [Concomitant]
     Dosage: UNK, 1X/DAY
  6. LYRICA [Suspect]
     Active Substance: PREGABALIN
     Indication: NEUROPATHY PERIPHERAL
     Dosage: 75 MG, 3X/DAY
  7. SUPER B COMPLEX [Concomitant]
     Active Substance: CYANOCOBALAMIN\DEXPANTHENOL\NIACINAMIDE\PYRIDOXINE HYDROCHLORIDE\RIBOFLAVIN 5^-PHOSPHATE SODIUM\THIAMINE HYDROCHLORIDE\VITAMIN B COMPLEX
     Dosage: UNK, 1X/DAY
  8. GLIPIZIDE ER [Concomitant]
     Active Substance: GLIPIZIDE
     Indication: DIABETES MELLITUS
     Dosage: 10 MG, 1X/DAY
  9. AMLODIPINE BESILATE [Concomitant]
     Active Substance: AMLODIPINE BESYLATE
     Indication: BLOOD PRESSURE ABNORMAL
     Dosage: 5 MG, 1X/DAY
  10. LISINOPRIL. [Concomitant]
     Active Substance: LISINOPRIL
     Indication: BLOOD PRESSURE ABNORMAL
     Dosage: 40 MG, 1X/DAY
  11. WARFARIN (COUMADIN) [Concomitant]
     Indication: ANTICOAGULANT THERAPY
     Dosage: 5 MG, 1X/DAY
  12. TERBINAFINE HYDROCHLORIDE 1% ANTIFUNGAL CREAM [Concomitant]
     Indication: NEUROPATHY PERIPHERAL
     Dosage: UNK, 1X/DAY
  13. OMEPRAZOLE/MAGNESIUM [Concomitant]
     Dosage: 81 MG, 1X/DAY
  14. CALTRATE (CALCIUM + D3) [Concomitant]
     Dosage: UNK, 1X/DAY
  15. NEURONTIN [Suspect]
     Active Substance: GABAPENTIN
     Indication: NEURALGIA
     Dosage: 300 MG, 3X/DAY
  16. SIMVASTATIN. [Concomitant]
     Active Substance: SIMVASTATIN
     Indication: BLOOD CHOLESTEROL ABNORMAL
     Dosage: 40 MG, 1X/DAY
  17. ATENOLOL. [Concomitant]
     Active Substance: ATENOLOL
     Indication: BLOOD PRESSURE ABNORMAL
     Dosage: 50 MG, 1X/DAY
  18. VITAMIN E [Concomitant]
     Active Substance: .ALPHA.-TOCOPHEROL
     Dosage: 600 MG, 1X/DAY
  19. OXYBUTYNIN ER (DITROPAN XL) [Concomitant]
     Indication: URINARY INCONTINENCE
     Dosage: 10 MG, 1X/DAY (AT NIGHT)
  20. CALCIUM POLYCARBOPHIL (FIBER THERAPY) [Concomitant]
     Dosage: 625 MG, 1X/DAY

REACTIONS (3)
  - Pain [Unknown]
  - Neuropathy peripheral [Unknown]
  - Gait disturbance [Unknown]
